FAERS Safety Report 18325790 (Version 1)
Quarter: 2020Q3

REPORT INFORMATION
  Report Type: Spontaneous
  Country: US (occurrence: US)
  Receive Date: 20200929
  Receipt Date: 20200929
  Transmission Date: 20201104
  Serious: Yes (Other)
  Sender: FDA-Public Use
  Company Number: US-SA-2020SA264611

PATIENT

DRUGS (2)
  1. CABLIVI [Suspect]
     Active Substance: CAPLACIZUMAB-YHDP
  2. RISTOCETIN. [Suspect]
     Active Substance: RISTOCETIN

REACTIONS (2)
  - Haemorrhage [Unknown]
  - Contusion [Unknown]
